FAERS Safety Report 24546136 (Version 5)
Quarter: 2024Q4

REPORT INFORMATION
  Report Type: Report from Study
  Country: BE (occurrence: BE)
  Receive Date: 20241024
  Receipt Date: 20241123
  Transmission Date: 20250115
  Serious: Yes (Hospitalization)
  Sender: ABBVIE
  Company Number: BE-ABBVIE-5961144

PATIENT
  Age: 64 Year
  Sex: Female
  Weight: 70 kg

DRUGS (15)
  1. FOSCARBIDOPA\FOSLEVODOPA [Suspect]
     Active Substance: FOSCARBIDOPA\FOSLEVODOPA
     Indication: Parkinson^s disease
     Dosage: LD: 0.42ML, BI RATE:0.55ML/H, LI RATE: 0.44ML/H, ED: 0.30ML, DURING 24 HOURS
     Route: 058
     Dates: start: 20240920, end: 20241002
  2. FOSCARBIDOPA\FOSLEVODOPA [Suspect]
     Active Substance: FOSCARBIDOPA\FOSLEVODOPA
     Dosage: BI RATE:0.46ML/H, HI RATE: 0.46ML/H, LI RATE: 0.46ML/H, DURING 24 HOURS
     Route: 058
     Dates: start: 20241002, end: 20241004
  3. FOSCARBIDOPA\FOSLEVODOPA [Suspect]
     Active Substance: FOSCARBIDOPA\FOSLEVODOPA
     Route: 058
     Dates: start: 2024
  4. FOSCARBIDOPA\FOSLEVODOPA [Suspect]
     Active Substance: FOSCARBIDOPA\FOSLEVODOPA
     Dosage: BI RATE:0.48ML/H, HI RATE: 0.48ML/H, LI RATE: 0.48ML/H, ED: 0.30ML, DURING 24 HOURS
     Route: 058
     Dates: start: 20241004
  5. Mirapexine [Concomitant]
     Indication: Product used for unknown indication
     Dosage: FREQUENCY TEXT: TWICE BEFORE GOING TO BED
  6. BENSERAZIDE\LEVODOPA [Concomitant]
     Active Substance: BENSERAZIDE\LEVODOPA
     Indication: Parkinson^s disease
     Dosage: FORM STRENGTH: 125 MILLIGRAM, AT 6 AM
     Route: 048
  7. BENSERAZIDE\LEVODOPA [Concomitant]
     Active Substance: BENSERAZIDE\LEVODOPA
     Indication: Parkinson^s disease
     Dosage: ONCE IN THE EVENING
     Route: 048
  8. AMANTADINE [Concomitant]
     Active Substance: AMANTADINE
     Indication: Parkinson^s disease
     Route: 048
  9. DIAZEPAM [Concomitant]
     Active Substance: DIAZEPAM
     Indication: Muscle spasms
     Dosage: AT 8:00AM AND 4:00PM
  10. RAMIPRIL [Concomitant]
     Active Substance: RAMIPRIL
     Indication: Prophylaxis
     Route: 048
  11. TRAZODONE [Concomitant]
     Active Substance: TRAZODONE HYDROCHLORIDE
     Indication: Sleep disorder
     Dosage: AT 10:00 P.M.
  12. STALEVO [Concomitant]
     Active Substance: CARBIDOPA\ENTACAPONE\LEVODOPA
     Indication: Parkinson^s disease
     Dosage: TIME INTERVAL: 0.33333333 DAYS
     Route: 048
  13. STALEVO [Concomitant]
     Active Substance: CARBIDOPA\ENTACAPONE\LEVODOPA
     Indication: Parkinson^s disease
     Route: 048
  14. BACLOFEN [Concomitant]
     Active Substance: BACLOFEN
     Indication: Muscle spasms
     Dosage: AT 12PM AND 9PM
  15. QUININE SULFATE [Concomitant]
     Active Substance: QUININE SULFATE
     Indication: Muscle spasms

REACTIONS (20)
  - Erythema [Unknown]
  - Infusion site pain [Unknown]
  - Infusion site warmth [Unknown]
  - Infusion site erythema [Not Recovered/Not Resolved]
  - Erythema [Recovering/Resolving]
  - Dyskinesia [Unknown]
  - Infusion site inflammation [Unknown]
  - Infusion site reaction [Unknown]
  - Parkinson^s disease [Recovering/Resolving]
  - Discomfort [Unknown]
  - Dyspnoea [Unknown]
  - Pain in extremity [Unknown]
  - Feeling hot [Unknown]
  - COVID-19 [Unknown]
  - Malaise [Unknown]
  - Device issue [Not Recovered/Not Resolved]
  - Skin reaction [Unknown]
  - Catheter site erythema [Unknown]
  - Catheter site pain [Unknown]
  - Erysipelas [Unknown]

NARRATIVE: CASE EVENT DATE: 20240101
